FAERS Safety Report 4999497-8 (Version None)
Quarter: 2006Q2

REPORT INFORMATION
  Report Type: 
  Country: None (occurrence: None)
  Receive Date: 20060510
  Receipt Date: 20060510
  Transmission Date: 20061013
  Serious: Yes (Life-Threatening, Hospitalization)
  Sender: FDA-Public Use
  Company Number: None

PATIENT
  Age: 84 Year
  Sex: Female

DRUGS (21)
  1. OMNIPAQUE 350 [Suspect]
     Indication: COMPUTERISED TOMOGRAM THORAX
     Dosage: 100 ML IV ONCE
     Route: 042
     Dates: start: 20060216
  2. IPRATROPIUM BROMIDE [Concomitant]
  3. PROPOXYPHENE HYDROCHLORIDE [Concomitant]
  4. ASPIRIN [Concomitant]
  5. EPOETIN ALFA [Concomitant]
  6. ISOSORBID MONONITRATE [Concomitant]
  7. POTASSIUM CHLORIDE [Concomitant]
  8. FUROSEMIDE [Concomitant]
  9. ESCITALOPRAMIL [Concomitant]
  10. LIDODERM PATCH [Concomitant]
  11. METOPROLOL TARTRATE [Concomitant]
  12. ESCZOPLIZONE [Concomitant]
  13. GABAPENTIN [Concomitant]
  14. NIFEDIPINE [Concomitant]
  15. CLOPIDOGREL [Concomitant]
  16. LANSOPRAZOLE [Concomitant]
  17. ASCORBIC ACID [Concomitant]
  18. SIMVASTATIN [Concomitant]
  19. GALANTAMINE HYDROBROMIDE [Concomitant]
  20. MIRTAZAPINE [Concomitant]
  21. LEVALBUTEROL HCL [Concomitant]

REACTIONS (3)
  - BLOOD POTASSIUM INCREASED [None]
  - BRADYCARDIA [None]
  - CHEST PAIN [None]
